FAERS Safety Report 8309354-7 (Version None)
Quarter: 2012Q2

REPORT INFORMATION
  Report Type: 
  Country: None (occurrence: None)
  Receive Date: 20120425
  Receipt Date: 20120416
  Transmission Date: 20120825
  Serious: Yes (Hospitalization)
  Sender: FDA-Public Use
  Company Number: US-ASTRAZENECA-2011SE78525

PATIENT
  Age: 62 Year
  Sex: Female

DRUGS (3)
  1. SYMBICORT [Suspect]
     Dosage: 160/4.5 MCG, TWO PUFFS TWICE DAILY
     Route: 055
  2. TOPROL-XL [Suspect]
     Route: 048
  3. NEXIUM [Suspect]
     Route: 048

REACTIONS (2)
  - OFF LABEL USE [None]
  - BRONCHITIS [None]
